FAERS Safety Report 16114858 (Version 6)
Quarter: 2020Q3

REPORT INFORMATION
  Report Type: Report from Study
  Country: US (occurrence: US)
  Receive Date: 20190325
  Receipt Date: 20200823
  Transmission Date: 20201102
  Serious: Yes (Hospitalization)
  Sender: FDA-Public Use
  Company Number: US-ACTELION-A-NJ2019-187918

PATIENT
  Sex: Male
  Weight: 65.31 kg

DRUGS (4)
  1. SPIRIVA [Suspect]
     Active Substance: TIOTROPIUM BROMIDE MONOHYDRATE
     Indication: PRODUCT USED FOR UNKNOWN INDICATION
     Route: 065
  2. REMODULIN [Suspect]
     Active Substance: TREPROSTINIL
     Indication: PRODUCT USED FOR UNKNOWN INDICATION
     Route: 065
  3. REVATIO [Concomitant]
     Active Substance: SILDENAFIL CITRATE
  4. OPSUMIT [Suspect]
     Active Substance: MACITENTAN
     Indication: PULMONARY HYPERTENSION
     Dosage: 10 MG, QD
     Route: 048

REACTIONS (10)
  - Catheter site erythema [Unknown]
  - Drug withdrawal syndrome [Unknown]
  - Respiratory failure [Unknown]
  - Diarrhoea [Unknown]
  - Pneumonia [Unknown]
  - Fluid retention [Unknown]
  - Emergency care [Unknown]
  - Dyspnoea [Unknown]
  - Catheter site pain [Unknown]
  - Catheter site swelling [Unknown]
